FAERS Safety Report 23416173 (Version 1)
Quarter: 2024Q1

REPORT INFORMATION
  Report Type: Spontaneous
  Country: KR (occurrence: US)
  Receive Date: 20240118
  Receipt Date: 20240118
  Transmission Date: 20240409
  Serious: Yes (Hospitalization)
  Sender: FDA-Public Use
  Company Number: KR-ANIPHARMA-2024-US-001927

PATIENT
  Age: 81 Year
  Sex: Female

DRUGS (2)
  1. CIMETIDINE HYDROCHLORIDE [Suspect]
     Active Substance: CIMETIDINE HYDROCHLORIDE
     Indication: Product used for unknown indication
     Dosage: UNKNOWN
     Route: 065
  2. LEVOFLOXACIN [Suspect]
     Active Substance: LEVOFLOXACIN
     Indication: Product used for unknown indication
     Dosage: UNKNOWN
     Route: 065

REACTIONS (1)
  - Long QT syndrome [Recovered/Resolved]
